FAERS Safety Report 17257803 (Version 1)
Quarter: 2019Q4

REPORT INFORMATION
  Report Type: Spontaneous
  Country: US (occurrence: US)
  Receive Date: 20191217
  Receipt Date: 20191217
  Transmission Date: 20200122
  Serious: No
  Sender: FDA-Public Use
  Company Number: None

PATIENT
  Age: 24 Year
  Sex: Female

DRUGS (4)
  1. TRIKAFTA [Suspect]
     Active Substance: ELEXACAFTOR\IVACAFTOR\TEZACAFTOR
     Indication: CYSTIC FIBROSIS
     Dosage: ?          OTHER DOSE:150/50MG/75MG/150;OTHER FREQUENCY:QAM +QPM;?
     Route: 048
     Dates: start: 20191120
  2. PULMOZYME [Concomitant]
     Active Substance: DORNASE ALFA
  3. ZENNEN [Concomitant]
  4. DRONABINOL. [Concomitant]
     Active Substance: DRONABINOL

REACTIONS (3)
  - Memory impairment [None]
  - Product dose omission [None]
  - Rash [None]

NARRATIVE: CASE EVENT DATE: 201912
